FAERS Safety Report 14689141 (Version 5)
Quarter: 2019Q3

REPORT INFORMATION
  Report Type: Spontaneous
  Country: US (occurrence: US)
  Receive Date: 20180328
  Receipt Date: 20190913
  Transmission Date: 20191004
  Serious: Yes (Other)
  Sender: FDA-Public Use
  Company Number: US-GLAXOSMITHKLINE-US2018GSK052321

PATIENT
  Sex: Female

DRUGS (4)
  1. PREVACID [Suspect]
     Active Substance: LANSOPRAZOLE
     Indication: GASTROOESOPHAGEAL REFLUX DISEASE
     Dosage: 15 MG, QD
     Route: 065
  2. PREVACID [Suspect]
     Active Substance: LANSOPRAZOLE
     Indication: GASTROOESOPHAGEAL REFLUX DISEASE
     Dosage: 40 MG, QD
     Route: 065
  3. OMEPRAZOLE. [Suspect]
     Active Substance: OMEPRAZOLE
     Indication: GASTROOESOPHAGEAL REFLUX DISEASE
     Dosage: 40 MG, QD
     Route: 065
  4. OMEPRAZOLE. [Suspect]
     Active Substance: OMEPRAZOLE
     Dosage: 20 MG, BID
     Route: 048

REACTIONS (16)
  - Renal failure [Unknown]
  - Chronic kidney disease [Unknown]
  - Renal impairment [Unknown]
  - Dialysis [Not Recovered/Not Resolved]
  - Haematuria [Unknown]
  - Dysuria [Unknown]
  - End stage renal disease [Not Recovered/Not Resolved]
  - Proteinuria [Unknown]
  - Nephropathy [Unknown]
  - Renal injury [Unknown]
  - Hydronephrosis [Unknown]
  - Blood creatinine increased [Unknown]
  - Acute kidney injury [Not Recovered/Not Resolved]
  - Hypertensive nephropathy [Unknown]
  - Diabetic nephropathy [Unknown]
  - Oliguria [Unknown]
